FAERS Safety Report 21473663 (Version 4)
Quarter: 2023Q1

REPORT INFORMATION
  Report Type: Report from Study
  Country: ES (occurrence: None)
  Receive Date: 20221018
  Receipt Date: 20230217
  Transmission Date: 20230418
  Serious: Yes (Hospitalization)
  Sender: FDA-Public Use
  Company Number: ES-ROCHE-3178466

PATIENT
  Age: 65 Year
  Sex: Male
  Weight: 71.2 kg

DRUGS (32)
  1. OCRELIZUMAB [Suspect]
     Active Substance: OCRELIZUMAB
     Indication: Primary progressive multiple sclerosis
     Dosage: TWO IV INFUSIONS SEPARATED BY 14 DAYS AT A SCHEDULED INTERVAL OF EVERY 24 WEEKS UP TO AT LEAST 120 W
     Route: 042
  2. OCRELIZUMAB [Suspect]
     Active Substance: OCRELIZUMAB
     Indication: Primary progressive multiple sclerosis
     Dosage: 600 MG EVERY 24 WEEKS (AS PER PROTOCOL)
     Route: 042
  3. OCRELIZUMAB [Suspect]
     Active Substance: OCRELIZUMAB
     Dosage: SUBSEQUENT DOSES ON :30/MAR/2016
     Route: 042
     Dates: start: 20160309, end: 20160309
  4. OCRELIZUMAB [Suspect]
     Active Substance: OCRELIZUMAB
     Dosage: SUBSEQUENT DOSES ON :  08/FEB/2017, 26/JUL/2017, 15/JAN/2018, 27/JUN/2018, 12/DEC/2018, 29/MAY/2019,
     Route: 042
     Dates: start: 20160829, end: 20160829
  5. LIORESAL [Concomitant]
     Active Substance: BACLOFEN
     Indication: Muscle spasticity
     Route: 048
     Dates: start: 20210427
  6. LIORESAL [Concomitant]
     Active Substance: BACLOFEN
     Route: 048
     Dates: start: 20220102
  7. LIORESAL [Concomitant]
     Active Substance: BACLOFEN
     Dates: end: 20131117
  8. LIORESAL [Concomitant]
     Active Substance: BACLOFEN
     Dates: start: 20131202, end: 20131226
  9. LIORESAL [Concomitant]
     Active Substance: BACLOFEN
     Dates: start: 20131118, end: 20131201
  10. LIORESAL [Concomitant]
     Active Substance: BACLOFEN
     Dates: start: 20131227, end: 20210426
  11. VENLAFAXINE [Concomitant]
     Active Substance: VENLAFAXINE HYDROCHLORIDE
     Indication: Depression
     Route: 048
     Dates: start: 201512
  12. CALCIFEDIOL [Concomitant]
     Active Substance: CALCIFEDIOL
     Indication: Multiple sclerosis
     Dosage: 1 TABLET
     Route: 048
     Dates: start: 2014
  13. CALCIFEDIOL [Concomitant]
     Active Substance: CALCIFEDIOL
     Indication: Lumbar vertebral fracture
     Dates: start: 20160515, end: 201607
  14. CETIRIZINE [Concomitant]
     Active Substance: CETIRIZINE HYDROCHLORIDE
     Dosage: SUBSEQUENT DOSES ON : 23/SEP/2015, 20/OCT/2015, 09/MAR/2016, 30/MAR/2016, 29/AUG/2016,  08/FEB/2017,
     Dates: start: 20150422, end: 20150422
  15. DEXCHLORPHENIRAMINE [Concomitant]
     Active Substance: DEXCHLORPHENIRAMINE
     Dates: start: 20120201
  16. METHYLPREDNISOLONE [Concomitant]
     Active Substance: METHYLPREDNISOLONE
     Dosage: SUBSEQUENT DOSES ON :01/FEB/2012, 04/JUL/2012, 18/JUL/2012, 19/DEC/2012, 05/JUN/2013, 02/JAN/2013, 1
     Dates: start: 20120118, end: 20120118
  17. ACETAMINOPHEN [Concomitant]
     Active Substance: ACETAMINOPHEN
     Indication: Pyrexia
     Dosage: SUBSEQUENT DOSES ON :18/JAN/2012, 04/JUL/2012, 18/JUL/2012, 19/DEC/2012,  02/JAN/2013, 05/JUN/2013,
     Dates: start: 20120201, end: 20120201
  18. ACETAMINOPHEN [Concomitant]
     Active Substance: ACETAMINOPHEN
     Dates: start: 20210330, end: 20210401
  19. POLARAMINE [Concomitant]
     Active Substance: DEXCHLORPHENIRAMINE MALEATE
     Dosage: SUBSEQUENT DOSES ON :18/JUL/2012,19/DEC/2012, 02/JAN/2013, 04/JUL/2012, 05/JUN/2013, 19/JUN/2013,  1
     Dates: start: 20120118
  20. ASPIRIN [Concomitant]
     Active Substance: ASPIRIN
     Indication: Headache
     Dates: start: 20120118, end: 20120120
  21. FOLIC ACID [Concomitant]
     Active Substance: FOLIC ACID
     Indication: Vitamin B12 deficiency
     Dates: end: 20140210
  22. TOZINAMERAN [Concomitant]
     Active Substance: TOZINAMERAN
     Indication: COVID-19 prophylaxis
     Dates: start: 20210310, end: 20210310
  23. TOZINAMERAN [Concomitant]
     Active Substance: TOZINAMERAN
     Dates: start: 20210330, end: 20210330
  24. CALCIUMOSTEO D [Concomitant]
     Indication: Vitamin D decreased
     Dates: start: 20201221
  25. CITALOPRAM [Concomitant]
     Active Substance: CITALOPRAM HYDROBROMIDE
     Indication: Depression
     Dates: end: 20151201
  26. DICLOFENAC [Concomitant]
     Active Substance: DICLOFENAC
     Indication: Gout
     Dates: start: 20120525, end: 20120527
  27. DALFAMPRIDINE [Concomitant]
     Active Substance: DALFAMPRIDINE
     Indication: Gait disturbance
     Dates: start: 20160305, end: 20160418
  28. LYRICA [Concomitant]
     Active Substance: PREGABALIN
     Indication: Back pain
     Dates: start: 20160310, end: 201607
  29. CYANOCOBALAMIN [Concomitant]
     Active Substance: CYANOCOBALAMIN
     Indication: Vitamin B12 deficiency
     Dates: start: 20110101, end: 20140210
  30. SERC [Concomitant]
     Indication: Vertigo
     Dates: start: 20190725, end: 20190728
  31. SERC [Concomitant]
     Indication: Vertigo
     Dates: start: 20210831, end: 20210915
  32. SIMVASTATIN [Concomitant]
     Active Substance: SIMVASTATIN
     Indication: Oedema peripheral
     Dates: start: 202210

REACTIONS (1)
  - COVID-19 pneumonia [Recovered/Resolved]

NARRATIVE: CASE EVENT DATE: 20220829
